FAERS Safety Report 5922225-6 (Version None)
Quarter: 2008Q4

REPORT INFORMATION
  Report Type: 
  Country: None (occurrence: None)
  Receive Date: 20081015
  Receipt Date: 20081002
  Transmission Date: 20090506
  Serious: No
  Sender: FDA-Public Use
  Company Number: 20085516

PATIENT
  Sex: Female

DRUGS (1)
  1. LIORESAL [Suspect]
     Indication: MUSCLE SPASTICITY
     Dosage: 125 MCG, DAILY, INTRATHECAL
     Route: 037

REACTIONS (6)
  - BURNING SENSATION [None]
  - DISCOMFORT [None]
  - FALL [None]
  - FEELING HOT [None]
  - NERVE INJURY [None]
  - NEURALGIA [None]
